FAERS Safety Report 25287117 (Version 4)
Quarter: 2025Q2

REPORT INFORMATION
  Report Type: Report from Study
  Country: CA (occurrence: CA)
  Receive Date: 20250509
  Receipt Date: 20250613
  Transmission Date: 20250716
  Serious: Yes (Death, Other)
  Sender: JOHNSON AND JOHNSON
  Company Number: CA-JNJFOC-20250372385

PATIENT
  Age: 89 Year
  Sex: Male

DRUGS (2)
  1. REMICADE [Suspect]
     Active Substance: INFLIXIMAB
     Indication: Crohn^s disease
     Route: 041
     Dates: start: 20130817, end: 20250321
  2. REMICADE [Suspect]
     Active Substance: INFLIXIMAB
     Route: 041
     Dates: start: 20130817

REACTIONS (2)
  - Neck mass [Fatal]
  - Neoplasm malignant [Fatal]

NARRATIVE: CASE EVENT DATE: 20250301
